FAERS Safety Report 8481770-2 (Version None)
Quarter: 2012Q3

REPORT INFORMATION
  Report Type: 
  Country: None (occurrence: None)
  Receive Date: 20120702
  Receipt Date: 20120628
  Transmission Date: 20120928
  Serious: Yes (Hospitalization, Other)
  Sender: FDA-Public Use
  Company Number: US-TEVA-345820USA

PATIENT
  Sex: Female
  Weight: 68.1 kg

DRUGS (4)
  1. PREGABALIN [Suspect]
     Indication: TRIGEMINAL NEURALGIA
     Dosage: 150 MILLIGRAM;
     Route: 048
  2. CARBAMAZEPINE [Suspect]
     Indication: TRIGEMINAL NEURALGIA
     Route: 048
  3. METFORMIN HCL [Concomitant]
     Indication: DIABETES MELLITUS
     Dosage: 1000 MILLIGRAM;
  4. GLYBURIDE [Concomitant]
     Indication: DIABETES MELLITUS
     Dosage: 5 MILLIGRAM;

REACTIONS (9)
  - DRUG LEVEL INCREASED [None]
  - APHAGIA [None]
  - DRUG ADMINISTRATION ERROR [None]
  - ABASIA [None]
  - INTENTIONAL DRUG MISUSE [None]
  - LOSS OF CONTROL OF LEGS [None]
  - PAIN [None]
  - COMMUNICATION DISORDER [None]
  - HYPOPHAGIA [None]
